FAERS Safety Report 7730155-2 (Version None)
Quarter: 2011Q3

REPORT INFORMATION
  Report Type: 
  Country: None (occurrence: None)
  Receive Date: 20110901
  Receipt Date: 20110901
  Transmission Date: 20111222
  Serious: No
  Sender: FDA-Public Use
  Company Number: None

PATIENT
  Age: 6 Year
  Sex: Male

DRUGS (1)
  1. INSPECTOR HECTOR PLAQUE DETECTOR PLAQUE-DETECTING PRE-BRUSH RINSE FOR [Suspect]
     Indication: DENTAL DISORDER PROPHYLAXIS
     Dates: start: 20110815

REACTIONS (2)
  - URTICARIA [None]
  - RASH [None]
